FAERS Safety Report 16019094 (Version 1)
Quarter: 2019Q1

REPORT INFORMATION
  Report Type: Report from Study
  Country: GB (occurrence: GB)
  Receive Date: 20190228
  Receipt Date: 20190228
  Transmission Date: 20190418
  Serious: Yes (Other)
  Sender: FDA-Public Use
  Company Number: GB-TEVA-2019-GB-1016498

PATIENT
  Age: 54 Year
  Sex: Female

DRUGS (43)
  1. METRONIDAZOLE. [Concomitant]
     Active Substance: METRONIDAZOLE
     Indication: OSTEOMYELITIS
     Dosage: 400 MILLIGRAM DAILY;
     Route: 048
     Dates: start: 20180915, end: 20180921
  2. CLARITHROMYCIN. [Concomitant]
     Active Substance: CLARITHROMYCIN
     Indication: LOWER RESPIRATORY TRACT INFECTION
     Dosage: 500 MILLIGRAM DAILY;
     Route: 048
     Dates: start: 20180701, end: 20180711
  3. PEPTAC (UNITED KINGDOM) [Concomitant]
     Route: 048
  4. DEXAMETHASONE. [Concomitant]
     Active Substance: DEXAMETHASONE
     Dosage: 1 MILLIGRAM DAILY;
     Route: 048
     Dates: start: 20151125, end: 20151202
  5. CYCLIZINE [Concomitant]
     Active Substance: CYCLIZINE
     Dosage: 50 MILLIGRAM DAILY;
     Route: 048
     Dates: start: 201507
  6. DEXAMETHASONE. [Concomitant]
     Active Substance: DEXAMETHASONE
     Dosage: 4 MILLIGRAM DAILY;
     Route: 048
     Dates: start: 20151104, end: 20151110
  7. VITAMIN D3 [Concomitant]
     Active Substance: CHOLECALCIFEROL
     Route: 048
     Dates: start: 20150827
  8. DIAZEPAM. [Concomitant]
     Active Substance: DIAZEPAM
     Indication: MUSCULOSKELETAL STIFFNESS
  9. MORPHINE SULPHATE [Concomitant]
     Active Substance: MORPHINE SULFATE
     Dosage: 10 MILLIGRAM DAILY;
     Route: 048
     Dates: start: 20171224
  10. BENZYLPENICILLIN [Concomitant]
     Active Substance: PENICILLIN G
     Indication: CELLULITIS
  11. DEXAMETHASONE. [Concomitant]
     Active Substance: DEXAMETHASONE
     Indication: METASTASES TO BONE
     Dosage: 4 MILLIGRAM DAILY;
     Route: 048
     Dates: start: 20151020, end: 20151103
  12. MORPHINE SULPHATE [Concomitant]
     Active Substance: MORPHINE SULFATE
     Dosage: ONCE AT NIGHT
     Route: 048
     Dates: start: 201504
  13. DENOSUMAB [Concomitant]
     Active Substance: DENOSUMAB
     Route: 058
     Dates: start: 20180118
  14. BENZYLPENICILLIN [Concomitant]
     Active Substance: PENICILLIN G
     Indication: PYREXIA
     Dosage: 1.2 GRAM DAILY;
     Route: 042
     Dates: start: 20180912, end: 20180915
  15. CODEINE [Concomitant]
     Active Substance: CODEINE
     Dosage: AS NEEDED
     Route: 048
     Dates: start: 201504
  16. LETROZOLE. [Suspect]
     Active Substance: LETROZOLE
     Indication: HER-2 POSITIVE BREAST CANCER
     Dosage: 2.5 MILLIGRAM DAILY;
     Route: 048
     Dates: start: 201507, end: 20170427
  17. TRASTUZUMAB. [Suspect]
     Active Substance: TRASTUZUMAB
     Indication: HER-2 POSITIVE BREAST CANCER
     Route: 058
     Dates: start: 20150716, end: 20171222
  18. DEXAMETHASONE. [Concomitant]
     Active Substance: DEXAMETHASONE
     Dosage: 2 MILLIGRAM DAILY; REDUCING WEEKLY DOSE
     Route: 048
     Dates: start: 20151111, end: 20151117
  19. PARACETAMOL [Concomitant]
     Active Substance: ACETAMINOPHEN
     Dosage: AS NEEDED
     Route: 048
     Dates: start: 201504
  20. HYOSCINE BUTYLBROMIDE [Concomitant]
     Active Substance: BUTYLSCOPOLAMINE
     Indication: NAUSEA
     Dosage: 10 MILLIGRAM DAILY;
     Route: 048
     Dates: start: 20181222
  21. LINEZOLID. [Concomitant]
     Active Substance: LINEZOLID
     Indication: PYREXIA
     Dosage: 600 MILLIGRAM DAILY;
     Route: 048
     Dates: start: 20181223, end: 20181227
  22. DENOSUMAB [Concomitant]
     Active Substance: DENOSUMAB
     Indication: METASTASES TO BONE
     Route: 058
     Dates: start: 20170604, end: 20170613
  23. AMOXICILLIN. [Concomitant]
     Active Substance: AMOXICILLIN
     Indication: OSTEOMYELITIS
     Route: 048
     Dates: start: 20170701, end: 20170706
  24. MEROPENEM. [Concomitant]
     Active Substance: MEROPENEM
     Indication: PYREXIA
     Dosage: 1 GRAM DAILY;
     Route: 042
     Dates: start: 20180813, end: 20180814
  25. CITALOPRAM [Concomitant]
     Active Substance: CITALOPRAM HYDROBROMIDE
     Dosage: 40 MILLIGRAM DAILY;
     Route: 048
     Dates: start: 2005
  26. MORPHINE SULPHATE [Concomitant]
     Active Substance: MORPHINE SULFATE
     Indication: BACK PAIN
     Dosage: 30 MILLIGRAM DAILY;
     Route: 048
     Dates: start: 201504
  27. DEXAMETHASONE. [Concomitant]
     Active Substance: DEXAMETHASONE
     Dosage: 8 MILLIGRAM DAILY; REDUCING DOSE FROM HOSPITAL ADMISSION 8/OCT/2015- 10/OCT/2015
     Route: 048
     Dates: start: 20151008, end: 20151020
  28. GABAPENTIN. [Concomitant]
     Active Substance: GABAPENTIN
     Route: 048
     Dates: start: 20151231
  29. ZOMETA [Concomitant]
     Active Substance: ZOLEDRONIC ACID
     Route: 042
     Dates: start: 20150827
  30. DIAZEPAM. [Concomitant]
     Active Substance: DIAZEPAM
     Indication: BACK PAIN
     Dosage: 2 MILLIGRAM DAILY;
     Route: 048
     Dates: start: 20180105
  31. DEXAMETHASONE. [Concomitant]
     Active Substance: DEXAMETHASONE
     Dosage: 1 MILLIGRAM DAILY;
     Route: 048
     Dates: start: 20151118, end: 20151124
  32. DOXYCYCLINE. [Concomitant]
     Active Substance: DOXYCYCLINE
     Indication: PYREXIA
     Dosage: 100 MILLIGRAM DAILY;
     Route: 048
     Dates: start: 20180814, end: 20180814
  33. MORPHINE SULPHATE [Concomitant]
     Active Substance: MORPHINE SULFATE
     Dosage: ONCE AT NIGHT
     Route: 048
     Dates: start: 20150516
  34. TEICOPLANIN [Concomitant]
     Active Substance: TEICOPLANIN
     Indication: PYREXIA
     Dosage: 600 MILLIGRAM DAILY;
     Route: 042
     Dates: start: 20181019, end: 20181025
  35. ZOMORPH [Concomitant]
     Active Substance: MORPHINE SULFATE
     Dosage: 30 MILLIGRAM DAILY;
     Route: 048
     Dates: start: 201611
  36. AMOXICILLIN. [Concomitant]
     Active Substance: AMOXICILLIN
     Indication: LOWER RESPIRATORY TRACT INFECTION
     Dosage: 1000 MILLIGRAM DAILY;
     Route: 048
     Dates: start: 20180701, end: 20180711
  37. PROMETHAZINE HYDROCHLORIDE. [Concomitant]
     Active Substance: PROMETHAZINE HYDROCHLORIDE
     Route: 048
  38. LISINOPRIL. [Concomitant]
     Active Substance: LISINOPRIL
     Indication: EJECTION FRACTION DECREASED
     Dosage: 2.5 MILLIGRAM DAILY;
     Route: 048
     Dates: start: 20161110
  39. LANSOPRAZOLE. [Concomitant]
     Active Substance: LANSOPRAZOLE
     Dosage: 15 MILLIGRAM DAILY;
     Route: 048
     Dates: start: 2001
  40. EXEMESTANE. [Suspect]
     Active Substance: EXEMESTANE
     Indication: HER-2 POSITIVE BREAST CANCER
     Dosage: 25 MILLIGRAM DAILY;
     Route: 048
     Dates: start: 20170428, end: 20180110
  41. DOXYCYCLINE. [Concomitant]
     Active Substance: DOXYCYCLINE
     Indication: LOWER RESPIRATORY TRACT INFECTION
     Route: 048
     Dates: start: 20170112, end: 20170118
  42. METRONIDAZOLE. [Concomitant]
     Active Substance: METRONIDAZOLE
     Indication: CELLULITIS
     Route: 048
     Dates: start: 20170701, end: 20170708
  43. MEROPENEM. [Concomitant]
     Active Substance: MEROPENEM
     Dosage: 1 GRAM DAILY;
     Route: 042
     Dates: start: 20181222, end: 20181227

REACTIONS (5)
  - Lymphoedema [Not Recovered/Not Resolved]
  - Herpes zoster [Recovered/Resolved]
  - Humerus fracture [Recovered/Resolved]
  - Anaemia [Recovered/Resolved]
  - Oral herpes [Recovered/Resolved]

NARRATIVE: CASE EVENT DATE: 20151112
